FAERS Safety Report 15453077 (Version 1)
Quarter: 2018Q4

REPORT INFORMATION
  Report Type: Spontaneous
  Country: BE (occurrence: BE)
  Receive Date: 20181001
  Receipt Date: 20181001
  Transmission Date: 20190204
  Serious: Yes (Hospitalization, Other)
  Sender: FDA-Public Use
  Company Number: BE-IMPAX LABORATORIES, INC-2018-IPXL-03140

PATIENT
  Age: 63 Year
  Sex: Male

DRUGS (3)
  1. LISINOPRIL. [Concomitant]
     Active Substance: LISINOPRIL
     Indication: PRODUCT USED FOR UNKNOWN INDICATION
     Dosage: UNK
     Route: 065
  2. ADRENACLICK [Suspect]
     Active Substance: EPINEPHRINE
     Indication: URTICARIA
     Dosage: UNK
     Route: 065
  3. ADRENACLICK [Suspect]
     Active Substance: EPINEPHRINE
     Indication: ANGIOEDEMA

REACTIONS (2)
  - Asphyxia [Recovered/Resolved]
  - Drug ineffective [Recovered/Resolved]
